FAERS Safety Report 4835319-3 (Version None)
Quarter: 2005Q4

REPORT INFORMATION
  Report Type: 
  Country: None (occurrence: None)
  Receive Date: 20051114
  Receipt Date: 20051102
  Transmission Date: 20060501
  Serious: Yes (Hospitalization)
  Sender: FDA-Public Use
  Company Number: US-2005-021916

PATIENT
  Age: 67 Year
  Sex: Female
  Weight: 79 kg

DRUGS (11)
  1. BETASERON [Suspect]
     Indication: SECONDARY PROGRESSIVE MULTIPLE SCLEROSIS
     Dosage: 8 MIU, EVERY 2D, SUBCUTANEUS
     Route: 058
     Dates: start: 19971016, end: 20051001
  2. BETASERON [Suspect]
     Indication: SECONDARY PROGRESSIVE MULTIPLE SCLEROSIS
     Dosage: 8 MIU, EVERY 2D, SUBCUTANEUS
     Route: 058
     Dates: start: 20051012
  3. ZANAFLEX [Suspect]
  4. BACLOFEN [Concomitant]
  5. ASCORBIC ACID [Concomitant]
  6. ATIVAN [Concomitant]
  7. LISINOPRIL [Concomitant]
  8. COLACE (DOCUSATE SODIUM) [Concomitant]
  9. MECLIZINE [Concomitant]
  10. NEURONTIN [Concomitant]
  11. PROTONIX [Concomitant]

REACTIONS (2)
  - HYPOTENSION [None]
  - SYNCOPE [None]
